FAERS Safety Report 18463838 (Version 1)
Quarter: 2020Q4

REPORT INFORMATION
  Report Type: Report from Study
  Country: US (occurrence: US)
  Receive Date: 20201104
  Receipt Date: 20201104
  Transmission Date: 20210114
  Serious: Yes (Hospitalization, Other)
  Sender: FDA-Public Use
  Company Number: US-TAKEDA-US201905445

PATIENT
  Sex: Female

DRUGS (8)
  1. GATTEX [Suspect]
     Active Substance: TEDUGLUTIDE\WATER
     Dosage: 1.23 MILLIGRAM, QOD
     Route: 058
     Dates: start: 20200513
  2. GATTEX [Suspect]
     Active Substance: TEDUGLUTIDE\WATER
     Indication: SHORT-BOWEL SYNDROME
     Dosage: 1.02 MILLIGRAM, 1X/DAY:QD
     Route: 058
     Dates: start: 20180816
  3. GATTEX [Suspect]
     Active Substance: TEDUGLUTIDE\WATER
     Indication: SHORT-BOWEL SYNDROME
     Dosage: 1.02 MILLIGRAM, 1X/DAY:QD
     Route: 058
     Dates: start: 20180816
  4. GATTEX [Suspect]
     Active Substance: TEDUGLUTIDE\WATER
     Indication: SHORT-BOWEL SYNDROME
     Dosage: 1.02 MILLIGRAM, 1X/DAY:QD
     Route: 058
     Dates: start: 20180816
  5. GATTEX [Suspect]
     Active Substance: TEDUGLUTIDE\WATER
     Dosage: 1.23 MILLIGRAM, QOD
     Route: 058
     Dates: start: 20200513
  6. GATTEX [Suspect]
     Active Substance: TEDUGLUTIDE\WATER
     Indication: SHORT-BOWEL SYNDROME
     Dosage: 1.02 MILLIGRAM, 1X/DAY:QD
     Route: 058
     Dates: start: 20180816
  7. GATTEX [Suspect]
     Active Substance: TEDUGLUTIDE\WATER
     Dosage: 1.23 MILLIGRAM, QOD
     Route: 058
     Dates: start: 20200513
  8. GATTEX [Suspect]
     Active Substance: TEDUGLUTIDE\WATER
     Dosage: 1.23 MILLIGRAM, QOD
     Route: 058
     Dates: start: 20200513

REACTIONS (2)
  - Infection [Unknown]
  - Inappropriate schedule of product administration [Unknown]
